FAERS Safety Report 7018579-2 (Version None)
Quarter: 2010Q3

REPORT INFORMATION
  Report Type: 
  Country: None (occurrence: None)
  Receive Date: 20100922
  Receipt Date: 20100913
  Transmission Date: 20110219
  Serious: Yes (Life-Threatening)
  Sender: FDA-Public Use
  Company Number: 2010TJ0149

PATIENT
  Age: 34 Year
  Sex: Female

DRUGS (1)
  1. TWINJECT 0.3 [Suspect]
     Indication: HYPERSENSITIVITY
     Dosage: 0.3,
     Dates: start: 20100904, end: 20100904

REACTIONS (3)
  - PRODUCT PACKAGING QUANTITY ISSUE [None]
  - PRODUCT QUALITY ISSUE [None]
  - SYRINGE ISSUE [None]
